FAERS Safety Report 8281691-4 (Version None)
Quarter: 2012Q2

REPORT INFORMATION
  Report Type: 
  Country: None (occurrence: None)
  Receive Date: 20120413
  Receipt Date: 20120410
  Transmission Date: 20120825
  Serious: Yes (Other)
  Sender: FDA-Public Use
  Company Number: AU-JNJFOC-20120404844

PATIENT
  Age: 24 Year
  Sex: Male

DRUGS (2)
  1. MINOXIDIL [Suspect]
     Indication: ALOPECIA
     Route: 061
     Dates: start: 20110901
  2. MINOXIDIL [Suspect]
     Route: 061

REACTIONS (5)
  - PSORIASIS [None]
  - ACNE [None]
  - DERMATITIS [None]
  - SKIN HYPOPIGMENTATION [None]
  - SKIN IRRITATION [None]
